FAERS Safety Report 9535856 (Version 1)
Quarter: 2013Q2

REPORT INFORMATION
  Report Type: Spontaneous
  Country: US (occurrence: None)
  Receive Date: 20130507
  Receipt Date: 20130507
  Transmission Date: 20140414
  Serious: Yes (Other)
  Sender: FDA-Public Use
  Company Number: PHEH2012US005463

PATIENT
  Age: 34 Year
  Sex: Male
  Weight: 104.3 kg

DRUGS (2)
  1. TASIGNA [Suspect]
     Route: 048
  2. METFORMIN (METFORMIN) [Concomitant]

REACTIONS (5)
  - Diabetes mellitus [None]
  - Influenza like illness [None]
  - Pain [None]
  - Fatigue [None]
  - Headache [None]
